FAERS Safety Report 10784779 (Version 1)
Quarter: 2015Q1

REPORT INFORMATION
  Report Type: Spontaneous
  Country: US (occurrence: US)
  Receive Date: 20150211
  Receipt Date: 20150211
  Transmission Date: 20150721
  Serious: No
  Sender: FDA-Public Use
  Company Number: US-GLAXOSMITHKLINE-A1083202A

PATIENT

DRUGS (1)
  1. LAMICTAL [Suspect]
     Active Substance: LAMOTRIGINE
     Indication: DEPRESSION
     Dosage: STARTED AT 25 MG, UNKNOWN FREQUENCY.ON 01 JUNE 2014, DOSE INCREASED TO 75 MG, UNKNOWN FREQUENCY.
     Route: 048
     Dates: start: 20140601

REACTIONS (2)
  - Polycystic ovaries [Not Recovered/Not Resolved]
  - Amenorrhoea [Not Recovered/Not Resolved]

NARRATIVE: CASE EVENT DATE: 20140611
